FAERS Safety Report 18104578 (Version 1)
Quarter: 2020Q3

REPORT INFORMATION
  Report Type: Other
  Country: BR (occurrence: BR)
  Receive Date: 20200803
  Receipt Date: 20200803
  Transmission Date: 20201103
  Serious: Yes (Hospitalization)
  Sender: FDA-Public Use
  Company Number: BR-ORCHID HEALTHCARE-2088057

PATIENT
  Age: 45 Year
  Sex: Male

DRUGS (1)
  1. LEVETIRACETAM. [Suspect]
     Active Substance: LEVETIRACETAM
     Indication: GENERALISED TONIC-CLONIC SEIZURE
     Route: 042

REACTIONS (1)
  - Renal failure [Recovered/Resolved]
